FAERS Safety Report 7327786-0 (Version None)
Quarter: 2011Q1

REPORT INFORMATION
  Report Type: 
  Country: None (occurrence: None)
  Receive Date: 20110303
  Receipt Date: 20110228
  Transmission Date: 20110831
  Serious: Yes (Other)
  Sender: FDA-Public Use
  Company Number: US-PFIZER INC-2011044167

PATIENT
  Sex: Female

DRUGS (1)
  1. CHANTIX [Suspect]
     Dosage: UNK

REACTIONS (5)
  - SWELLING FACE [None]
  - ERYTHEMA [None]
  - PHARYNGEAL OEDEMA [None]
  - BLISTER [None]
  - DYSPHAGIA [None]
